FAERS Safety Report 7250636-8 (Version None)
Quarter: 2011Q1

REPORT INFORMATION
  Report Type: 
  Country: None (occurrence: None)
  Receive Date: 20110128
  Receipt Date: 20110121
  Transmission Date: 20110831
  Serious: Yes (Other)
  Sender: FDA-Public Use
  Company Number: US-JNJFOC-20110103583

PATIENT
  Sex: Female
  Weight: 54.43 kg

DRUGS (2)
  1. LEVAQUIN [Suspect]
     Indication: INFECTION PROPHYLAXIS
     Route: 048
  2. ANTIBIOTICS [Concomitant]
     Indication: INFECTION
     Route: 048

REACTIONS (4)
  - TINNITUS [None]
  - MUSCULOSKELETAL STIFFNESS [None]
  - PALPITATIONS [None]
  - DRUG HYPERSENSITIVITY [None]
